FAERS Safety Report 8560877-5 (Version None)
Quarter: 2012Q3

REPORT INFORMATION
  Report Type: 
  Country: None (occurrence: None)
  Receive Date: 20120802
  Receipt Date: 20120724
  Transmission Date: 20120928
  Serious: Yes (Other)
  Sender: FDA-Public Use
  Company Number: US-ASTRAZENECA-2012SE52054

PATIENT
  Age: 71 Year
  Sex: Female
  Weight: 80.3 kg

DRUGS (7)
  1. TOPROL-XL [Suspect]
     Route: 048
  2. TOPROL-XL [Suspect]
     Indication: CARDIAC FLUTTER
     Route: 048
  3. TOPROL-XL [Suspect]
     Indication: HEART RATE IRREGULAR
     Route: 048
  4. TOPROL-XL [Suspect]
     Indication: HYPERTENSION
     Route: 048
  5. TOPROL-XL [Suspect]
     Route: 048
  6. PRINIVIL [Concomitant]
     Indication: HYPERTENSION
  7. TOPROL-XL [Suspect]
     Route: 048

REACTIONS (2)
  - ARTERIAL OCCLUSIVE DISEASE [None]
  - MYOCARDIAL INFARCTION [None]
